FAERS Safety Report 23243389 (Version 1)
Quarter: 2023Q4

REPORT INFORMATION
  Report Type: Report from Study
  Country: JP (occurrence: JP)
  Receive Date: 20231130
  Receipt Date: 20231130
  Transmission Date: 20240109
  Serious: Yes (Other)
  Sender: FDA-Public Use
  Company Number: JP-TAKEDA-2023TJP015426

PATIENT
  Age: 74 Year
  Sex: Male

DRUGS (4)
  1. PANITUMUMAB [Suspect]
     Active Substance: PANITUMUMAB
     Indication: Colon cancer recurrent
     Dosage: UNK UNK, Q2HR
     Route: 042
     Dates: start: 20170803, end: 20171011
  2. PANITUMUMAB [Suspect]
     Active Substance: PANITUMUMAB
     Dosage: UNK UNK, Q2WEEKS
     Route: 042
     Dates: start: 20171102, end: 20171116
  3. PANITUMUMAB [Suspect]
     Active Substance: PANITUMUMAB
     Dosage: UNK UNK, Q2WEEKS
     Route: 042
     Dates: start: 20171207, end: 20171207
  4. PANITUMUMAB [Suspect]
     Active Substance: PANITUMUMAB
     Dosage: UNK UNK, Q2WEEKS
     Route: 042
     Dates: start: 20180105

REACTIONS (6)
  - Skin disorder [Unknown]
  - Hypomagnesaemia [Unknown]
  - Dermatitis acneiform [Unknown]
  - Paronychia [Unknown]
  - Hyperkalaemia [Unknown]
  - Hypomagnesaemia [Unknown]
